FAERS Safety Report 5080662-9 (Version None)
Quarter: 2006Q3

REPORT INFORMATION
  Report Type: 
  Country: None (occurrence: None)
  Receive Date: 20060809
  Receipt Date: 20060726
  Transmission Date: 20061208
  Serious: Yes (Other)
  Sender: FDA-Public Use
  Company Number: 14477

PATIENT
  Age: 25 Year
  Sex: Male

DRUGS (5)
  1. BLEOMYCIN [Suspect]
     Indication: TESTIS CANCER
     Dosage: 20 IU PER_CYCLE
  2. CISPLATIN [Suspect]
     Indication: TESTIS CANCER
     Dosage: 40 MG/M2 PER_CYCLE
  3. DEXAMETHASONE [Suspect]
     Indication: TESTIS CANCER
     Dosage: 8 MG PER_CYCLE
  4. DEXAMETHASONE [Suspect]
     Indication: TESTIS CANCER
     Dosage: 4 MG PER_CYCLE
  5. ETOPOSIDE [Suspect]
     Indication: TESTIS CANCER

REACTIONS (1)
  - OSTEONECROSIS [None]
